FAERS Safety Report 12995132 (Version 1)
Quarter: 2016Q4

REPORT INFORMATION
  Report Type: Spontaneous
  Country: US (occurrence: US)
  Receive Date: 20161202
  Receipt Date: 20161202
  Transmission Date: 20170207
  Serious: No
  Sender: FDA-Public Use
  Company Number: US-PFIZER INC-2016524142

PATIENT
  Age: 33 Year
  Sex: Female

DRUGS (5)
  1. MARCAINE [Suspect]
     Active Substance: BUPIVACAINE HYDROCHLORIDE
     Dosage: UNK
     Dates: start: 20160912, end: 20160912
  2. MORPHINE [Concomitant]
     Active Substance: MORPHINE
     Dosage: 0.3 MG, UNK
     Route: 037
     Dates: start: 200401
  3. FENTANYL. [Concomitant]
     Active Substance: FENTANYL
     Dosage: 20 UG, UNK
     Route: 037
     Dates: start: 200401
  4. MARCAINE [Suspect]
     Active Substance: BUPIVACAINE HYDROCHLORIDE
     Indication: SPINAL ANAESTHESIA
     Dosage: 2 ML, UNK
     Route: 037
  5. MARCAINE [Suspect]
     Active Substance: BUPIVACAINE HYDROCHLORIDE
     Dosage: 13.5 MG, UNK
     Dates: start: 20160917

REACTIONS (1)
  - Drug ineffective [Recovered/Resolved]
